FAERS Safety Report 6792856-2 (Version None)
Quarter: 2010Q2

REPORT INFORMATION
  Report Type: 
  Country: None (occurrence: None)
  Receive Date: 20100624
  Receipt Date: 20100617
  Transmission Date: 20101027
  Serious: Yes (Death)
  Sender: FDA-Public Use
  Company Number: US-AMGEN-QUU407516

PATIENT
  Sex: Female

DRUGS (3)
  1. NPLATE [Suspect]
     Indication: IDIOPATHIC THROMBOCYTOPENIC PURPURA
     Dates: start: 20081201, end: 20081222
  2. NYSTATIN [Concomitant]
     Dates: start: 20010911
  3. CALTRATE [Concomitant]
     Dates: start: 20010911

REACTIONS (2)
  - CARDIAC ARREST [None]
  - SUDDEN CARDIAC DEATH [None]
